FAERS Safety Report 4270045-3 (Version None)
Quarter: 2004Q1

REPORT INFORMATION
  Report Type: 
  Country: None (occurrence: None)
  Receive Date: 20040114
  Receipt Date: 20030110
  Transmission Date: 20041129
  Serious: No
  Sender: FDA-Public Use
  Company Number: US-GLAXOSMITHKLINE-A0392331A

PATIENT
  Age: 40 Year
  Sex: Female
  Weight: 59.1 kg

DRUGS (2)
  1. WELLBUTRIN [Suspect]
     Indication: ILL-DEFINED DISORDER
     Dosage: 150MG PER DAY
     Route: 048
     Dates: start: 20021201
  2. SYNTHROID [Concomitant]
     Dosage: .05U PER DAY
     Route: 048
     Dates: start: 19991001

REACTIONS (3)
  - HALLUCINATION [None]
  - HEADACHE [None]
  - HOT FLUSH [None]
